FAERS Safety Report 6887575-8 (Version None)
Quarter: 2010Q3

REPORT INFORMATION
  Report Type: 
  Country: None (occurrence: None)
  Receive Date: 20100730
  Receipt Date: 20100723
  Transmission Date: 20110219
  Serious: Yes (Other)
  Sender: FDA-Public Use
  Company Number: US-ASTRAZENECA-2009UW17564

PATIENT
  Age: 18 Year
  Sex: Female
  Weight: 120.2 kg

DRUGS (4)
  1. SEROQUEL [Suspect]
     Indication: INSOMNIA
     Route: 048
     Dates: start: 20020101, end: 20070101
  2. RISPERDAL [Concomitant]
     Indication: SCHIZOPHRENIA
     Dates: start: 20090101
  3. ABILIFY [Concomitant]
  4. DEPAKOTE [Concomitant]

REACTIONS (4)
  - BLOOD CHOLESTEROL INCREASED [None]
  - GESTATIONAL DIABETES [None]
  - HYPERLIPIDAEMIA [None]
  - TYPE 2 DIABETES MELLITUS [None]
